FAERS Safety Report 8544059-9 (Version None)
Quarter: 2012Q3

REPORT INFORMATION
  Report Type: 
  Country: None (occurrence: None)
  Receive Date: 20120727
  Receipt Date: 20120717
  Transmission Date: 20120928
  Serious: Yes (Hospitalization)
  Sender: FDA-Public Use
  Company Number: FR-009507513-2012SP028911

PATIENT

DRUGS (6)
  1. COPEGUS [Suspect]
     Indication: HEPATITIS C
     Dosage: 800 MG, QD
     Dates: start: 20110517
  2. ZOVIRAX [Concomitant]
     Indication: ORAL DISORDER
     Dosage: 800 MG, BID
     Dates: start: 20120124
  3. VIRAFERONPEG [Suspect]
     Indication: HEPATITIS C
     Dosage: 80 ?G, QW
     Dates: start: 20110517
  4. VICTRELIS [Suspect]
     Indication: HEPATITIS C
     Dosage: 800 MG, TID
     Dates: start: 20110614
  5. NEORECORMON [Concomitant]
     Indication: ANAEMIA
     Dosage: 30000 IU, QW
  6. NEUPOGEN [Concomitant]
     Indication: NEUTROPENIA
     Dates: start: 20120117

REACTIONS (1)
  - CHOLECYSTITIS ACUTE [None]
